FAERS Safety Report 6114463-7 (Version None)
Quarter: 2009Q1

REPORT INFORMATION
  Report Type: 
  Country: None (occurrence: None)
  Receive Date: 20090313
  Receipt Date: 20090303
  Transmission Date: 20090719
  Serious: Yes (Other)
  Sender: FDA-Public Use
  Company Number: AR-AMGEN-US337190

PATIENT
  Sex: Female
  Weight: 63 kg

DRUGS (2)
  1. ENBREL [Suspect]
     Indication: RHEUMATOID ARTHRITIS
     Route: 058
     Dates: start: 20060704, end: 20081101
  2. DELTISONA B [Concomitant]
     Dosage: 1 TABLET (8-12 MG) ONCE DAILY

REACTIONS (3)
  - ERYSIPELAS [None]
  - RENAL FAILURE [None]
  - URINARY TRACT INFECTION [None]
